FAERS Safety Report 6081612-9 (Version None)
Quarter: 2009Q1

REPORT INFORMATION
  Report Type: 
  Country: None (occurrence: None)
  Receive Date: 20090218
  Receipt Date: 20090211
  Transmission Date: 20090719
  Serious: Yes (Hospitalization)
  Sender: FDA-Public Use
  Company Number: US-BIOGENIDEC-2009BI004987

PATIENT
  Age: 56 Year
  Sex: Female

DRUGS (2)
  1. AVONEX [Suspect]
     Indication: MULTIPLE SCLEROSIS
     Route: 030
     Dates: start: 20000101, end: 20070101
  2. AVONEX [Suspect]
     Route: 030
     Dates: start: 20070101

REACTIONS (3)
  - ABASIA [None]
  - PYREXIA [None]
  - URINARY TRACT INFECTION [None]
